FAERS Safety Report 6043161-3 (Version None)
Quarter: 2009Q1

REPORT INFORMATION
  Report Type: 
  Country: None (occurrence: None)
  Receive Date: 20090119
  Receipt Date: 20090113
  Transmission Date: 20090719
  Serious: Yes (Other)
  Sender: FDA-Public Use
  Company Number: US-JNJCH-2009001069

PATIENT
  Age: 55 Year
  Sex: Male
  Weight: 86.2 kg

DRUGS (2)
  1. COOL MINT LISTERINE POCKETPAKS [Suspect]
     Indication: BREATH ODOUR
     Dosage: TEXT:1X A DAY
     Route: 048
  2. VALSARTAN [Concomitant]
     Indication: HYPERTENSION
     Dosage: TEXT:180 MG 1X DAY
     Route: 048

REACTIONS (4)
  - APPLICATION SITE IRRITATION [None]
  - GLOSSODYNIA [None]
  - SPEECH DISORDER [None]
  - TONGUE PARALYSIS [None]
